FAERS Safety Report 18364325 (Version 1)
Quarter: 2020Q4

REPORT INFORMATION
  Report Type: Spontaneous
  Country: FR (occurrence: FR)
  Receive Date: 20201009
  Receipt Date: 20201009
  Transmission Date: 20210114
  Serious: Yes (Other)
  Sender: FDA-Public Use
  Company Number: FR-PFIZER INC-2020385026

PATIENT
  Age: 66 Year
  Sex: Male

DRUGS (1)
  1. TEMSIROLIMUS. [Suspect]
     Active Substance: TEMSIROLIMUS
     Dosage: 15 MG, WEEKLY
     Dates: start: 201002

REACTIONS (7)
  - Thrombocytopenia [Recovering/Resolving]
  - Bladder obstruction [Recovering/Resolving]
  - Colitis [Recovering/Resolving]
  - Telangiectasia [Recovering/Resolving]
  - Recall phenomenon [Unknown]
  - Bladder stenosis [Recovering/Resolving]
  - Rectal ulcer [Recovering/Resolving]
